FAERS Safety Report 7244423-4 (Version None)
Quarter: 2011Q1

REPORT INFORMATION
  Report Type: 
  Country: None (occurrence: None)
  Receive Date: 20110119
  Receipt Date: 20110119
  Transmission Date: 20110831
  Serious: No
  Sender: FDA-Public Use
  Company Number: None

PATIENT
  Age: 4 Year
  Sex: Male

DRUGS (1)
  1. TRIAD PLUS ALCOHOL PREP PAD 70% TRIAD [Suspect]
     Indication: TYPE 1 DIABETES MELLITUS
     Dosage: I WIPE EVERY 2 DAYS TOP
     Route: 061
     Dates: start: 20100824, end: 20101101

REACTIONS (4)
  - INFUSION SITE PUSTULE [None]
  - BLOOD BLISTER [None]
  - INFUSION SITE VESICLES [None]
  - DEVICE ALARM ISSUE [None]
